FAERS Safety Report 5230519-5 (Version None)
Quarter: 2007Q1

REPORT INFORMATION
  Report Type: 
  Country: None (occurrence: None)
  Receive Date: 20070202
  Receipt Date: 20070122
  Transmission Date: 20070707
  Serious: Yes (Hospitalization)
  Sender: FDA-Public Use
  Company Number: 2007BI001502

PATIENT

DRUGS (1)
  1. AVONEX [Suspect]
     Indication: MULTIPLE SCLEROSIS
     Dosage: 10 UG; QW; IM
     Route: 030
     Dates: start: 20040701, end: 20061201

REACTIONS (2)
  - MALIGNANT MELANOMA [None]
  - MULTIPLE SCLEROSIS RELAPSE [None]
